FAERS Safety Report 6212358-1 (Version None)
Quarter: 2009Q2

REPORT INFORMATION
  Report Type: 
  Country: None (occurrence: None)
  Receive Date: 20090529
  Receipt Date: 20090521
  Transmission Date: 20091009
  Serious: Yes (Life-Threatening, Hospitalization)
  Sender: FDA-Public Use
  Company Number: CHNY2009ES01639

PATIENT
  Age: 44 Year
  Sex: Female

DRUGS (6)
  1. LORAZEPAM [Suspect]
     Indication: DEPRESSION
     Dosage: 1 MG, ORAL
     Route: 048
     Dates: start: 20080801, end: 20090119
  2. FLUOXETINE [Suspect]
     Indication: DEPRESSION
     Dosage: 20 MG, QD, ORAL
     Route: 048
     Dates: start: 20080201, end: 20090119
  3. ZOLPIDEM [Suspect]
     Indication: DEPRESSION
     Dosage: 10 MG, QD, ORAL
     Route: 048
     Dates: start: 20060101, end: 20090119
  4. ANAFRANIL [Suspect]
     Indication: DEPRESSION
     Dosage: 25 MG, ORAL
     Route: 048
     Dates: start: 20080801, end: 20090119
  5. MOTILIUM [Suspect]
     Indication: ANTIEMETIC SUPPORTIVE CARE
     Dosage: 60 MG, ORAL
     Route: 048
     Dates: start: 20080601, end: 20090119
  6. OMEPRAZOLE [Concomitant]

REACTIONS (1)
  - THROMBOTIC THROMBOCYTOPENIC PURPURA [None]
